FAERS Safety Report 15011124 (Version 1)
Quarter: 2018Q2

REPORT INFORMATION
  Report Type: Spontaneous
  Country: IT (occurrence: IT)
  Receive Date: 20180614
  Receipt Date: 20180614
  Transmission Date: 20180711
  Serious: Yes (Other)
  Sender: FDA-Public Use
  Company Number: IT-PFIZER INC-2018238550

PATIENT
  Age: 34 Year
  Sex: Female

DRUGS (2)
  1. XANAX [Suspect]
     Active Substance: ALPRAZOLAM
     Dosage: UNK
     Dates: start: 2014
  2. LEXOTAN [Interacting]
     Active Substance: BROMAZEPAM
     Dosage: UNK
     Dates: start: 2014

REACTIONS (3)
  - Overdose [Unknown]
  - Mental impairment [Recovered/Resolved]
  - Drug interaction [Unknown]

NARRATIVE: CASE EVENT DATE: 2014
